FAERS Safety Report 7092081-4 (Version None)
Quarter: 2010Q4

REPORT INFORMATION
  Report Type: 
  Country: None (occurrence: None)
  Receive Date: 20101109
  Receipt Date: 20101029
  Transmission Date: 20110411
  Serious: Yes (Other)
  Sender: FDA-Public Use
  Company Number: BR-US-EMD SERONO, INC.-7025749

PATIENT
  Sex: Female

DRUGS (5)
  1. REBIF [Suspect]
     Indication: RELAPSING-REMITTING MULTIPLE SCLEROSIS
  2. HIDANTAL [Concomitant]
  3. FENITOIN (FENITOINA) [Concomitant]
  4. LANTUS [Concomitant]
  5. HUMALOG [Concomitant]

REACTIONS (5)
  - DIABETES MELLITUS INADEQUATE CONTROL [None]
  - DIZZINESS [None]
  - MALAISE [None]
  - RENAL DISORDER [None]
  - SYNCOPE [None]
